FAERS Safety Report 4537050-0 (Version None)
Quarter: 2004Q4

REPORT INFORMATION
  Report Type: 
  Country: None (occurrence: None)
  Receive Date: 20041223
  Receipt Date: 20040928
  Transmission Date: 20050328
  Serious: No
  Sender: FDA-Public Use
  Company Number: US-BRISTOL-MYERS SQUIBB COMPANY-12719852

PATIENT

DRUGS (1)
  1. ATAZANAVIR [Suspect]
     Dosage: ONGOING 9-12 MONTHS

REACTIONS (3)
  - BLOOD CORTISOL DECREASED [None]
  - CUSHINGOID [None]
  - LIPOHYPERTROPHY [None]
